FAERS Safety Report 24445513 (Version 2)
Quarter: 2024Q4

REPORT INFORMATION
  Report Type: Spontaneous
  Country: US (occurrence: US)
  Receive Date: 20241016
  Receipt Date: 20241104
  Transmission Date: 20250114
  Serious: Yes (Life-Threatening, Hospitalization)
  Sender: TEVA
  Company Number: US-TEVA-VS-3254192

PATIENT
  Age: 89 Year
  Sex: Female

DRUGS (1)
  1. CYCLOBENZAPRINE [Suspect]
     Active Substance: CYCLOBENZAPRINE
     Indication: Back pain
     Route: 065

REACTIONS (4)
  - Distributive shock [Unknown]
  - Encephalopathy [Unknown]
  - Hypotension [Unknown]
  - Hypothermia [Recovering/Resolving]
